FAERS Safety Report 11150198 (Version 1)
Quarter: 2015Q2

REPORT INFORMATION
  Report Type: Spontaneous
  Country: JP (occurrence: JP)
  Receive Date: 20150529
  Receipt Date: 20150529
  Transmission Date: 20150821
  Serious: Yes (Hospitalization, Other)
  Sender: FDA-Public Use
  Company Number: JP-ASTRAZENECA-2015SE41739

PATIENT
  Age: 11889 Day
  Sex: Female
  Weight: 53 kg

DRUGS (17)
  1. POLARAMINE [Concomitant]
     Active Substance: DEXCHLORPHENIRAMINE MALEATE
     Dates: start: 20150410, end: 20150410
  2. GASTER [Concomitant]
     Active Substance: FAMOTIDINE
     Dates: start: 20150410, end: 20150410
  3. SOLULACT [Concomitant]
     Dates: start: 20150410, end: 20150410
  4. NITRAZEPAM [Suspect]
     Active Substance: NITRAZEPAM
     Indication: BIPOLAR II DISORDER
     Dosage: STRENGTH: 5 MG, DOSE UNKNOWN
     Route: 048
     Dates: start: 20150426, end: 20150426
  5. SEROQUEL XR [Suspect]
     Active Substance: QUETIAPINE FUMARATE
     Indication: BIPOLAR II DISORDER
     Route: 048
     Dates: start: 20150330, end: 20150409
  6. QUETIAPINE [Suspect]
     Active Substance: QUETIAPINE
     Indication: BIPOLAR II DISORDER
     Dosage: STRENGTH: 25 MG, DOSE UNKNOWN
     Route: 048
     Dates: start: 20150426, end: 20150426
  7. CARBAMAZEPINE. [Suspect]
     Active Substance: CARBAMAZEPINE
     Indication: BIPOLAR II DISORDER
     Dosage: STRENGTH: 100 MG, DOSE UNKNOWN
     Route: 048
     Dates: start: 20150426, end: 20150426
  8. ABILIFY [Suspect]
     Active Substance: ARIPIPRAZOLE
     Indication: BIPOLAR II DISORDER
     Dosage: STRENGTH: 6 MG, DOSE UNKNOWN
     Route: 048
     Dates: start: 20150426, end: 20150426
  9. LUNESTA [Concomitant]
     Active Substance: ESZOPICLONE
     Route: 048
     Dates: start: 20150317, end: 20150412
  10. CARBAMAZEPINE. [Suspect]
     Active Substance: CARBAMAZEPINE
     Indication: BIPOLAR II DISORDER
     Route: 048
     Dates: start: 20150420, end: 20150425
  11. FAVOIR [Concomitant]
     Route: 048
     Dates: start: 20150324, end: 20150426
  12. ISOTONIC SODIUM CHLORIDE SOLUTION [Concomitant]
     Active Substance: SODIUM CHLORIDE
     Dates: start: 20150410, end: 20150410
  13. ABILIFY [Suspect]
     Active Substance: ARIPIPRAZOLE
     Indication: BIPOLAR II DISORDER
     Route: 048
     Dates: start: 20150413, end: 20150425
  14. SAXIZON [Concomitant]
     Active Substance: HYDROCORTISONE SODIUM SUCCINATE
     Dates: start: 20150410, end: 20150410
  15. YOKUKANSAN [Concomitant]
     Active Substance: HERBALS
     Dates: start: 20150413, end: 20150426
  16. QUETIAPINE [Suspect]
     Active Substance: QUETIAPINE
     Indication: BIPOLAR II DISORDER
     Route: 048
     Dates: start: 20150420, end: 20150425
  17. NITRAZEPAM [Suspect]
     Active Substance: NITRAZEPAM
     Indication: BIPOLAR II DISORDER
     Route: 048
     Dates: start: 20150420, end: 20150425

REACTIONS (3)
  - Anaphylactoid reaction [Recovered/Resolved]
  - Toxicity to various agents [Recovered/Resolved]
  - Suicide attempt [Recovered/Resolved]

NARRATIVE: CASE EVENT DATE: 20150410
